FAERS Safety Report 9202446 (Version 1)
Quarter: 2013Q2

REPORT INFORMATION
  Report Type: Spontaneous
  Country: US (occurrence: US)
  Receive Date: 20130401
  Receipt Date: 20130401
  Transmission Date: 20140414
  Serious: Yes (Death, Other)
  Sender: FDA-Public Use
  Company Number: US-AMGEN-USASP2013021408

PATIENT
  Age: 62 Year
  Sex: Female

DRUGS (4)
  1. ARANESP [Suspect]
     Indication: PRODUCT USED FOR UNKNOWN INDICATION
     Dosage: 300 MUG, QD
     Dates: start: 20130102
  2. AVASTIN /00848101/ [Concomitant]
  3. PACLITAXEL +PHARMA [Concomitant]
  4. CARBOPLATIN [Concomitant]

REACTIONS (2)
  - Death [Fatal]
  - Impaired self-care [Unknown]
